FAERS Safety Report 4710993-0 (Version None)
Quarter: 2005Q3

REPORT INFORMATION
  Report Type: 
  Country: None (occurrence: None)
  Receive Date: 20050708
  Receipt Date: 20050624
  Transmission Date: 20060218
  Serious: Yes (Death, Hospitalization, Other)
  Sender: FDA-Public Use
  Company Number: 2005FR-00061

PATIENT
  Age: 75 Year
  Sex: Female
  Weight: 58 kg

DRUGS (11)
  1. ASPIRIN [Suspect]
     Indication: MYOCARDIAL ISCHAEMIA
     Dosage: 75MG, ONCE DAILY, ORAL
     Route: 048
  2. FOSAMAX [Concomitant]
  3. OMEPRAZOLE [Concomitant]
  4. FOSINOPRIL [Concomitant]
  5. DIPYRIDAMOLE [Concomitant]
  6. ATENOLOL [Concomitant]
  7. PRAVASTATIN [Concomitant]
  8. ISOSORBIDE MONONITRATE [Concomitant]
  9. ADCAL-D3 [Concomitant]
  10. AMLODIPINE [Concomitant]
  11. GTN [Concomitant]

REACTIONS (5)
  - DYSPHAGIA [None]
  - GASTROINTESTINAL TRACT MUCOSAL DISCOLOURATION [None]
  - OESOPHAGEAL STENOSIS [None]
  - OESOPHAGITIS [None]
  - WEIGHT DECREASED [None]
